FAERS Safety Report 6660247-0 (Version None)
Quarter: 2010Q1

REPORT INFORMATION
  Report Type: 
  Country: None (occurrence: None)
  Receive Date: 20100331
  Receipt Date: 20100305
  Transmission Date: 20100710
  Serious: No
  Sender: FDA-Public Use
  Company Number: 2009BI034548

PATIENT
  Age: 39 Year
  Sex: Male

DRUGS (2)
  1. TYSABRI [Suspect]
     Indication: MULTIPLE SCLEROSIS
     Route: 042
     Dates: start: 20070628, end: 20070727
  2. TYSABRI [Suspect]
     Route: 042
     Dates: start: 20090930

REACTIONS (4)
  - DYSURIA [None]
  - FATIGUE [None]
  - PYREXIA [None]
  - URINARY RETENTION [None]
